FAERS Safety Report 7995831-5 (Version None)
Quarter: 2011Q4

REPORT INFORMATION
  Report Type: 
  Country: None (occurrence: None)
  Receive Date: 20111220
  Receipt Date: 20111216
  Transmission Date: 20120403
  Serious: Yes (Other)
  Sender: FDA-Public Use
  Company Number: CA-ABBOTT-11P-028-0873028-00

PATIENT
  Age: 40 Year
  Sex: Female

DRUGS (3)
  1. SYNTHROID [Suspect]
     Indication: HYPOTHYROIDISM
     Route: 048
  2. COLASTRIMINE OD [Concomitant]
     Indication: PRODUCT USED FOR UNKNOWN INDICATION
  3. VESICARE [Suspect]
     Indication: HYPERTONIC BLADDER
     Dates: start: 20100101

REACTIONS (8)
  - HEADACHE [None]
  - PAIN [None]
  - SENSATION OF PRESSURE [None]
  - METRORRHAGIA [None]
  - ABNORMAL SENSATION IN EYE [None]
  - MENSTRUATION IRREGULAR [None]
  - NECK PAIN [None]
  - EYE PAIN [None]
